FAERS Safety Report 4871707-7 (Version None)
Quarter: 2006Q1

REPORT INFORMATION
  Report Type: 
  Country: None (occurrence: None)
  Receive Date: 20060104
  Receipt Date: 20051018
  Transmission Date: 20060701
  Serious: Yes (Disabling, Other)
  Sender: FDA-Public Use
  Company Number: 2005AC01639

PATIENT
  Age: 78 Year
  Sex: Female

DRUGS (5)
  1. MARCAINE [Suspect]
     Indication: KNEE ARTHROPLASTY
     Dosage: 20MG/4ML
     Route: 037
     Dates: start: 20050928, end: 20050928
  2. MARCAINE [Suspect]
     Indication: ANAESTHESIA
     Dosage: 20MG/4ML
     Route: 037
     Dates: start: 20050928, end: 20050928
  3. MARCAINE [Suspect]
     Indication: OSTEOARTHRITIS
     Dosage: 20MG/4ML
     Route: 037
     Dates: start: 20050928, end: 20050928
  4. LEVOBUPIVACAINE [Concomitant]
     Indication: ANAESTHESIA
     Dates: start: 20050928, end: 20050928
  5. MORPHINE [Concomitant]
     Indication: ANALGESIC EFFECT
     Dates: start: 20050928, end: 20050928

REACTIONS (8)
  - BRADYCARDIA [None]
  - BRAIN OEDEMA [None]
  - HYPOTENSION [None]
  - MAINTENANCE OF ANAESTHESIA [None]
  - MYELITIS [None]
  - NEUROMUSCULAR BLOCKADE [None]
  - PARAPLEGIA [None]
  - PERIPHERAL COLDNESS [None]
